FAERS Safety Report 6214082-8 (Version None)
Quarter: 2009Q2

REPORT INFORMATION
  Report Type: 
  Country: None (occurrence: None)
  Receive Date: 20090602
  Receipt Date: 20090601
  Transmission Date: 20091009
  Serious: Yes (Life-Threatening)
  Sender: FDA-Public Use
  Company Number: 2009TJ0073

PATIENT
  Age: 59 Year
  Sex: Female

DRUGS (1)
  1. TWINJECT 0.3 [Suspect]
     Indication: ANAPHYLACTIC REACTION
     Dosage: 0.3, AS NEED
     Dates: start: 20090320, end: 20090320

REACTIONS (3)
  - CONTUSION [None]
  - DEVICE FAILURE [None]
  - PRODUCT QUALITY ISSUE [None]
